FAERS Safety Report 8261003-2 (Version None)
Quarter: 2012Q2

REPORT INFORMATION
  Report Type: 
  Country: None (occurrence: None)
  Receive Date: 20120405
  Receipt Date: 20120329
  Transmission Date: 20120825
  Serious: Yes (Other)
  Sender: FDA-Public Use
  Company Number: US-PFIZER INC-2012033682

PATIENT
  Sex: Female
  Weight: 90.7 kg

DRUGS (7)
  1. GABAPENTIN [Suspect]
     Indication: DEPRESSION
     Dosage: TWO TIMES A DAY
     Route: 048
  2. SYNTHROID [Concomitant]
     Indication: THYROID DISORDER
  3. CALCIUM [Concomitant]
     Indication: OSTEOPOROSIS
     Dosage: 600 MG, 1X/DAY
  4. ACETYLSALICYLIC ACID [Concomitant]
     Indication: CARDIOVASCULAR DISORDER
     Dosage: 81 MG, 1X/DAY
  5. SYNTHROID [Concomitant]
     Indication: THYROIDECTOMY
     Dosage: 0.175 MG, 1X/DAY
  6. NEURONTIN [Suspect]
     Indication: DEPRESSION
     Dosage: 1200 MG, 2X/DAY
     Route: 048
     Dates: start: 20050101
  7. NEURONTIN [Suspect]
     Indication: BIPOLAR DISORDER
     Dosage: 600 MG, 4X/DAY
     Route: 048
     Dates: start: 20120208, end: 20120213

REACTIONS (3)
  - DRUG DOSE OMISSION [None]
  - DEPRESSION [None]
  - DRUG INEFFECTIVE [None]
